FAERS Safety Report 5188329-3 (Version None)
Quarter: 2006Q4

REPORT INFORMATION
  Report Type: 
  Country: None (occurrence: None)
  Receive Date: 20061221
  Receipt Date: 20061211
  Transmission Date: 20070319
  Serious: Yes (Hospitalization)
  Sender: FDA-Public Use
  Company Number: US-ELI_LILLY_AND_COMPANY-US200612002811

PATIENT
  Age: 73 Year
  Sex: Female

DRUGS (1)
  1. FORTEO [Suspect]
     Indication: OSTEOPOROSIS
     Dates: start: 20060806, end: 20061127

REACTIONS (6)
  - ADVERSE DRUG REACTION [None]
  - HERPES ZOSTER [None]
  - INTESTINAL FUNCTIONAL DISORDER [None]
  - INTESTINAL OBSTRUCTION [None]
  - PHARMACEUTICAL PRODUCT COMPLAINT [None]
  - STAPHYLOCOCCAL INFECTION [None]
